FAERS Safety Report 7935612-1 (Version None)
Quarter: 2011Q4

REPORT INFORMATION
  Report Type: 
  Country: None (occurrence: None)
  Receive Date: 20111123
  Receipt Date: 20111114
  Transmission Date: 20120403
  Serious: Yes (Hospitalization)
  Sender: FDA-Public Use
  Company Number: US-ELI_LILLY_AND_COMPANY-US201111005472

PATIENT
  Age: 50 Year
  Sex: Female

DRUGS (7)
  1. APIDRA [Concomitant]
  2. COREG [Concomitant]
  3. SANCTURA [Concomitant]
  4. ALPRAZOLAM [Concomitant]
  5. AMBIEN [Concomitant]
  6. VICTOZA [Concomitant]
  7. CYMBALTA [Suspect]
     Indication: DEPRESSION
     Dosage: 60 MG, QD

REACTIONS (10)
  - DRUG DOSE OMISSION [None]
  - JOINT INJURY [None]
  - ADVERSE EVENT [None]
  - DRUG WITHDRAWAL SYNDROME [None]
  - TACHYPHRENIA [None]
  - NEPHROLITHIASIS [None]
  - KNEE ARTHROPLASTY [None]
  - FEELING ABNORMAL [None]
  - FALL [None]
  - POSTOPERATIVE ADHESION [None]
